FAERS Safety Report 14375237 (Version 3)
Quarter: 2019Q2

REPORT INFORMATION
  Report Type: Spontaneous
  Country: US (occurrence: US)
  Receive Date: 20180111
  Receipt Date: 20190418
  Transmission Date: 20190711
  Serious: Yes (Hospitalization)
  Sender: FDA-Public Use
  Company Number: US-PFIZER INC-2018005646

PATIENT
  Age: 65 Year
  Sex: Female

DRUGS (3)
  1. SUTENT [Suspect]
     Active Substance: SUNITINIB MALATE
     Dosage: 20 MG, 1X/DAY
     Dates: end: 20180102
  2. SUTENT [Suspect]
     Active Substance: SUNITINIB MALATE
     Indication: METASTATIC RENAL CELL CARCINOMA
     Dosage: 50 MG, CYCLIC, (2 WEEKS ON/ 1 WEEK OFF)
     Dates: start: 20171220
  3. SUTENT [Suspect]
     Active Substance: SUNITINIB MALATE
     Indication: BRAIN CANCER METASTATIC
     Dosage: 37.5 MG, CYCLIC (2 WEEKS ON/1 WEEK OFF)

REACTIONS (5)
  - Musculoskeletal pain [Unknown]
  - Fatigue [Unknown]
  - Nausea [Unknown]
  - Malaise [Recovered/Resolved]
  - Insomnia [Unknown]

NARRATIVE: CASE EVENT DATE: 20171220
